FAERS Safety Report 22261618 (Version 2)
Quarter: 2023Q2

REPORT INFORMATION
  Report Type: Spontaneous
  Country: US (occurrence: US)
  Receive Date: 20230427
  Receipt Date: 20230516
  Transmission Date: 20230721
  Serious: Yes (Other)
  Sender: FDA-Public Use
  Company Number: US-BAYER-2023A052456

PATIENT
  Age: 59 Year
  Sex: Male

DRUGS (3)
  1. KOVALTRY [Suspect]
     Active Substance: ANTIHEMOPHILIC FACTOR, HUMAN RECOMBINANT
     Dosage: 6250 IU
     Route: 042
  2. KOVALTRY [Suspect]
     Active Substance: ANTIHEMOPHILIC FACTOR, HUMAN RECOMBINANT
     Dosage: TO TREAT BROKEN TOE
     Route: 042
     Dates: start: 202301, end: 202301
  3. KOVALTRY [Suspect]
     Active Substance: ANTIHEMOPHILIC FACTOR, HUMAN RECOMBINANT
     Dosage: 3 DF, TO TREAT BACK BLEED
     Route: 042
     Dates: start: 202304, end: 202304

REACTIONS (2)
  - Foot fracture [None]
  - Haemorrhage [None]

NARRATIVE: CASE EVENT DATE: 20230101
